FAERS Safety Report 14280457 (Version 1)
Quarter: 2017Q4

REPORT INFORMATION
  Report Type: Spontaneous
  Country: FR (occurrence: FR)
  Receive Date: 20171212
  Receipt Date: 20171212
  Transmission Date: 20180321
  Serious: Yes (Other)
  Sender: FDA-Public Use
  Company Number: FR-BIOMARINAP-FR-2017-116359

PATIENT
  Weight: 28 kg

DRUGS (1)
  1. VIMIZIM [Suspect]
     Active Substance: ELOSULFASE ALFA
     Indication: MUCOPOLYSACCHARIDOSIS IV
     Dosage: 5 MG/KG, QW
     Route: 042
     Dates: start: 20171115

REACTIONS (4)
  - Chills [Recovering/Resolving]
  - Abdominal pain [Recovering/Resolving]
  - Staphylococcal infection [Unknown]
  - Vomiting [Recovering/Resolving]
